FAERS Safety Report 9633213 (Version 1)
Quarter: 2013Q4

REPORT INFORMATION
  Report Type: Spontaneous
  Country: US (occurrence: None)
  Receive Date: 20131018
  Receipt Date: 20131018
  Transmission Date: 20140711
  Serious: Yes (Hospitalization)
  Sender: FDA-Public Use
  Company Number: None

PATIENT
  Age: 63 Year
  Sex: Male

DRUGS (3)
  1. ZYTIGA [Suspect]
     Indication: PROSTATE CANCER
     Dosage: 4 TABLETS
     Route: 048
     Dates: start: 20130729
  2. SIMROSTATIN [Concomitant]
  3. LISINOPRIL [Concomitant]

REACTIONS (3)
  - Myocardial infarction [None]
  - Cardiac murmur [None]
  - Drug interaction [None]
